FAERS Safety Report 24396326 (Version 2)
Quarter: 2024Q4

REPORT INFORMATION
  Report Type: Report from Study
  Country: ZA (occurrence: ZA)
  Receive Date: 20241004
  Receipt Date: 20241104
  Transmission Date: 20250115
  Serious: Yes (Other)
  Sender: REGENERON
  Company Number: ZA-BAYER-2024A141045

PATIENT
  Sex: Male

DRUGS (8)
  1. EYLEA [Suspect]
     Active Substance: AFLIBERCEPT
     Indication: Neovascular age-related macular degeneration
     Dosage: 1 VIAL PER EYE, 40 MG/ML, SOLUTION FOR INJECTION
     Dates: start: 20210116, end: 20210116
  2. EYLEA [Suspect]
     Active Substance: AFLIBERCEPT
     Dosage: UNK, 40 MG/ML, SOLUTION FOR INJECTION
     Dates: start: 20231024, end: 20231024
  3. EYLEA [Suspect]
     Active Substance: AFLIBERCEPT
     Dosage: UNK, 40 MG/ML, SOLUTION FOR INJECTION
     Dates: start: 20231123, end: 20231123
  4. EYLEA [Suspect]
     Active Substance: AFLIBERCEPT
     Dosage: UNK, 40 MG/ML, SOLUTION FOR INJECTION
     Dates: start: 20240222, end: 20240222
  5. EYLEA [Suspect]
     Active Substance: AFLIBERCEPT
     Dosage: UNK, 40 MG/ML, SOLUTION FOR INJECTION
     Dates: start: 20240424, end: 20240424
  6. EYLEA [Suspect]
     Active Substance: AFLIBERCEPT
     Dosage: UNK, 40 MG/ML, SOLUTION FOR INJECTION
     Dates: start: 20240516, end: 20240516
  7. EYLEA [Suspect]
     Active Substance: AFLIBERCEPT
     Dosage: UNK, 40 MG/ML, SOLUTION FOR INJECTION
     Dates: start: 20240704, end: 20240704
  8. EYLEA [Suspect]
     Active Substance: AFLIBERCEPT
     Dosage: UNK, 40 MG/ML, SOLUTION FOR INJECTION
     Dates: start: 20240813, end: 20240813

REACTIONS (1)
  - Neoplasm malignant [Not Recovered/Not Resolved]
